FAERS Safety Report 15110981 (Version 1)
Quarter: 2018Q2

REPORT INFORMATION
  Report Type: Spontaneous
  Country: US (occurrence: US)
  Receive Date: 20180612
  Receipt Date: 20180612
  Transmission Date: 20180711
  Serious: Yes (Hospitalization, Disabling, Other)
  Sender: FDA-Public Use
  Company Number: None

PATIENT
  Age: 63 Year
  Sex: Male
  Weight: 90 kg

DRUGS (1)
  1. CADUET (GENERIC) [Suspect]
     Active Substance: AMLODIPINE BESYLATE\ATORVASTATIN CALCIUM
     Dosage: ?          QUANTITY:45 DF DOSAGE FORM;?
     Route: 048

REACTIONS (4)
  - Muscle disorder [None]
  - Blood urine present [None]
  - Gastric disorder [None]
  - Increased bronchial secretion [None]

NARRATIVE: CASE EVENT DATE: 20180514
